FAERS Safety Report 7101831-X (Version None)
Quarter: 2010Q4

REPORT INFORMATION
  Report Type: 
  Country: None (occurrence: None)
  Receive Date: 20101115
  Receipt Date: 20101110
  Transmission Date: 20110411
  Serious: Yes (Death)
  Sender: FDA-Public Use
  Company Number: PHHY2010AR76272

PATIENT
  Sex: Female

DRUGS (2)
  1. GALVUS MET [Suspect]
     Dosage: 1 TABLET (850/50 MG) DAILY
  2. EXFORGE [Suspect]
     Indication: BLOOD GLUCOSE INCREASED
     Dosage: 160/10 MG, UNK
     Dates: start: 20100921

REACTIONS (1)
  - CEREBROVASCULAR ACCIDENT [None]
